FAERS Safety Report 8252911-7 (Version None)
Quarter: 2012Q2

REPORT INFORMATION
  Report Type: 
  Country: None (occurrence: None)
  Receive Date: 20120402
  Receipt Date: 20120125
  Transmission Date: 20120825
  Serious: No
  Sender: FDA-Public Use
  Company Number: US-ABBOTT-12P-163-0893983-00

PATIENT
  Sex: Male
  Weight: 103.06 kg

DRUGS (4)
  1. ANDROGEL [Suspect]
     Indication: BLOOD TESTOSTERONE DECREASED
     Dosage: 1 PACKET DAILY
     Dates: start: 20110101
  2. DILAUDID [Concomitant]
     Indication: PAIN
  3. UNKNOWN BLOOD PRESSURE MEDICATION [Concomitant]
     Indication: HYPERTENSION
  4. MORPHINE [Concomitant]
     Indication: PAIN

REACTIONS (3)
  - DECREASED INTEREST [None]
  - BLOOD TESTOSTERONE ABNORMAL [None]
  - FATIGUE [None]
